FAERS Safety Report 9069089 (Version 1)
Quarter: 2013Q1

REPORT INFORMATION
  Report Type: Spontaneous
  Country: US (occurrence: US)
  Receive Date: 20130215
  Receipt Date: 20130215
  Transmission Date: 20140127
  Serious: Yes (Hospitalization)
  Sender: FDA-Public Use
  Company Number: US-BAYER-2013-019264

PATIENT
  Age: 23 Year
  Sex: Female

DRUGS (5)
  1. YASMIN [Suspect]
  2. PENICILLIN [Concomitant]
  3. NAPROXEN [Concomitant]
     Dosage: 50 MG, TWICE DAILY PRN
     Route: 048
  4. PRENATAL VITAMINS [Concomitant]
  5. LORTAB [Concomitant]

REACTIONS (1)
  - Pulmonary embolism [None]
